FAERS Safety Report 18283158 (Version 1)
Quarter: 2020Q3

REPORT INFORMATION
  Report Type: Spontaneous
  Country: CA (occurrence: CA)
  Receive Date: 20200918
  Receipt Date: 20200918
  Transmission Date: 20201103
  Serious: Yes (Other)
  Sender: FDA-Public Use
  Company Number: CA-ASTRAZENECA-2020SF17024

PATIENT
  Age: 51 Year
  Sex: Female

DRUGS (2)
  1. ESOMEPRAZOLE. [Suspect]
     Active Substance: ESOMEPRAZOLE MAGNESIUM
     Indication: IMPAIRED GASTRIC EMPTYING
     Route: 048
  2. ESOMEPRAZOLE. [Suspect]
     Active Substance: ESOMEPRAZOLE MAGNESIUM
     Indication: GASTROOESOPHAGEAL REFLUX DISEASE
     Route: 048

REACTIONS (7)
  - Fall [Recovering/Resolving]
  - Osteopenia [Recovering/Resolving]
  - Vitamin B12 deficiency [Recovering/Resolving]
  - Thoracic vertebral fracture [Recovering/Resolving]
  - Pneumonia [Recovering/Resolving]
  - Ankle fracture [Recovering/Resolving]
  - Malabsorption [Recovering/Resolving]
